FAERS Safety Report 13947846 (Version 3)
Quarter: 2018Q3

REPORT INFORMATION
  Report Type: Report from Study
  Country: US (occurrence: US)
  Receive Date: 20170908
  Receipt Date: 20180706
  Transmission Date: 20181010
  Serious: No
  Sender: FDA-Public Use
  Company Number: PHEH2017US028750

PATIENT
  Age: 74 Year
  Sex: Female

DRUGS (1)
  1. ENTRESTO [Suspect]
     Active Substance: SACUBITRIL\VALSARTAN
     Indication: CARDIAC FAILURE
     Dosage: 1 DF (49/51 MG), UNK
     Route: 048
     Dates: start: 20170726

REACTIONS (2)
  - Tooth loss [Unknown]
  - Weight decreased [Unknown]

NARRATIVE: CASE EVENT DATE: 20180523
